FAERS Safety Report 14178603 (Version 1)
Quarter: 2017Q4

REPORT INFORMATION
  Report Type: Spontaneous
  Country: US (occurrence: US)
  Receive Date: 20171110
  Receipt Date: 20171110
  Transmission Date: 20180321
  Serious: No
  Sender: FDA-Public Use
  Company Number: US-AMGEN-USASP2017168811

PATIENT
  Age: 53 Year
  Sex: Male

DRUGS (3)
  1. ORENCIA [Concomitant]
     Active Substance: ABATACEPT
     Dosage: UNK
  2. METHOTREXATE. [Concomitant]
     Active Substance: METHOTREXATE
     Dosage: UNK
     Dates: start: 201606, end: 201703
  3. ENBREL [Suspect]
     Active Substance: ETANERCEPT
     Indication: RHEUMATOID ARTHRITIS
     Dosage: UNK
     Route: 065
     Dates: start: 20150701, end: 20170327

REACTIONS (1)
  - Therapy non-responder [Unknown]
